FAERS Safety Report 15010931 (Version 1)
Quarter: 2018Q2

REPORT INFORMATION
  Report Type: Spontaneous
  Country: US (occurrence: US)
  Receive Date: 20180529
  Receipt Date: 20180529
  Transmission Date: 20180711
  Serious: Yes (Life-Threatening, Hospitalization, Disabling)
  Sender: FDA-Public Use
  Company Number: None

PATIENT
  Age: 43 Year
  Sex: Male

DRUGS (7)
  1. FISH OIL [Concomitant]
     Active Substance: FISH OIL
  2. KLONOPIN [Concomitant]
     Active Substance: CLONAZEPAM
  3. KLONOPIN [Suspect]
     Active Substance: CLONAZEPAM
     Indication: DEPRESSION
     Route: 048
  4. KLONOPIN [Suspect]
     Active Substance: CLONAZEPAM
     Indication: MENIERE^S DISEASE
     Route: 048
  5. REMERON [Concomitant]
     Active Substance: MIRTAZAPINE
  6. GABAPENTIN. [Concomitant]
     Active Substance: GABAPENTIN
  7. KLONOPIN [Suspect]
     Active Substance: CLONAZEPAM
     Indication: ANXIETY DISORDER
     Route: 048

REACTIONS (8)
  - Product prescribing issue [None]
  - Feeling abnormal [None]
  - Incorrect dose administered [None]
  - Anxiety [None]
  - Hallucination [None]
  - Rhabdomyolysis [None]
  - Suicide attempt [None]
  - Tremor [None]

NARRATIVE: CASE EVENT DATE: 20171108
